FAERS Safety Report 13009095 (Version 1)
Quarter: 2016Q4

REPORT INFORMATION
  Report Type: Spontaneous
  Country: US (occurrence: US)
  Receive Date: 20161208
  Receipt Date: 20161208
  Transmission Date: 20170207
  Serious: No
  Sender: FDA-Public Use
  Company Number: US-ACTELION-A-US2016-146662

PATIENT
  Age: 77 Year
  Sex: Female
  Weight: 91.16 kg

DRUGS (2)
  1. UPTRAVI [Suspect]
     Active Substance: SELEXIPAG
     Indication: PULMONARY ARTERIAL HYPERTENSION
     Dosage: 1600 MCG, BID
     Route: 048
     Dates: start: 20160603
  2. LETAIRIS [Concomitant]
     Active Substance: AMBRISENTAN

REACTIONS (2)
  - Ear discomfort [Unknown]
  - Nasal congestion [Unknown]
